FAERS Safety Report 4848454-0 (Version None)
Quarter: 2005Q4

REPORT INFORMATION
  Report Type: 
  Country: None (occurrence: None)
  Receive Date: 20051115
  Receipt Date: 20050817
  Transmission Date: 20060501
  Serious: Yes (Hospitalization)
  Sender: FDA-Public Use
  Company Number: S05-USA-04032-01

PATIENT
  Age: 85 Year
  Sex: Female

DRUGS (4)
  1. NAMENDA [Suspect]
     Indication: DEMENTIA
     Dosage: 10 MG BID PO
     Route: 048
  2. EXELON [Concomitant]
  3. REMERON [Concomitant]
  4. PAXIL [Concomitant]

REACTIONS (2)
  - CONVULSION [None]
  - DRUG SCREEN FALSE POSITIVE [None]
